FAERS Safety Report 17105387 (Version 1)
Quarter: 2019Q4

REPORT INFORMATION
  Report Type: Spontaneous
  Country: US (occurrence: US)
  Receive Date: 20191203
  Receipt Date: 20191203
  Transmission Date: 20200122
  Serious: Yes (Hospitalization)
  Sender: FDA-Public Use
  Company Number: US-TEVA-2019-US-1146560

PATIENT
  Age: 23 Year
  Sex: Female

DRUGS (2)
  1. ENOXAPARIN SODIUM. [Suspect]
     Active Substance: ENOXAPARIN SODIUM
     Indication: CEREBRAL VENOUS SINUS THROMBOSIS
     Route: 065
  2. ASPIRIN. [Suspect]
     Active Substance: ASPIRIN
     Indication: CEREBRAL VENOUS SINUS THROMBOSIS
     Route: 065

REACTIONS (7)
  - Intracranial haematoma [Recovered/Resolved]
  - Catheter site haematoma [Recovered/Resolved]
  - Cerebral ventricle dilatation [Recovered/Resolved]
  - Hydrocephalus [Recovered/Resolved]
  - Extradural haematoma [Recovered/Resolved]
  - Diplopia [Unknown]
  - Gait disturbance [Unknown]
